FAERS Safety Report 5011260-0 (Version None)
Quarter: 2006Q2

REPORT INFORMATION
  Report Type: 
  Country: None (occurrence: None)
  Receive Date: 20060525
  Receipt Date: 20060510
  Transmission Date: 20061013
  Serious: Yes (Hospitalization, Other)
  Sender: FDA-Public Use
  Company Number: US-AVENTIS-200614248US

PATIENT
  Sex: Male

DRUGS (4)
  1. LANTUS [Suspect]
     Indication: DIABETES MELLITUS NON-INSULIN-DEPENDENT
     Dosage: DOSE UNIT: UNITS
     Dates: start: 20031222
  2. ATENOLOL [Concomitant]
     Dosage: DOSE: UNKNOWN
  3. SINGULAIR [Concomitant]
     Dosage: DOSE: UNKNOWN
  4. ZOLOFT [Concomitant]
     Dosage: DOSE: UNKNOWN

REACTIONS (3)
  - CEREBROVASCULAR ACCIDENT [None]
  - HYPERGLYCAEMIA [None]
  - MENTAL IMPAIRMENT [None]
